FAERS Safety Report 6991319-9 (Version None)
Quarter: 2010Q3

REPORT INFORMATION
  Report Type: 
  Country: None (occurrence: None)
  Receive Date: 20100916
  Receipt Date: 20080904
  Transmission Date: 20110219
  Serious: No
  Sender: FDA-Public Use
  Company Number: US-WYE-H05587908

PATIENT
  Sex: Female

DRUGS (1)
  1. PREMARIN [Suspect]
     Dosage: 0.9MG; FREQUENCY UNKNOWN
     Route: 048

REACTIONS (2)
  - ALOPECIA [None]
  - WHEEZING [None]
